FAERS Safety Report 10214099 (Version 1)
Quarter: 2014Q2

REPORT INFORMATION
  Report Type: Spontaneous
  Country: US (occurrence: US)
  Receive Date: 20140603
  Receipt Date: 20140603
  Transmission Date: 20141212
  Serious: Yes (Other)
  Sender: FDA-Public Use
  Company Number: US-JNJFOC-20140600205

PATIENT
  Sex: 0

DRUGS (2)
  1. OLYSIO [Suspect]
     Indication: HEPATITIS
     Route: 048
  2. SOFOSBUVIR [Suspect]
     Indication: PRODUCT USED FOR UNKNOWN INDICATION
     Route: 048

REACTIONS (8)
  - Nephrotic syndrome [Unknown]
  - Blood creatinine increased [Unknown]
  - Renal failure acute [Unknown]
  - Hyperbilirubinaemia [Unknown]
  - Off label use [Recovered/Resolved]
  - Nausea [Unknown]
  - Vomiting [Unknown]
  - Hypertension [Unknown]
